FAERS Safety Report 10395222 (Version 1)
Quarter: 2014Q3

REPORT INFORMATION
  Report Type: Spontaneous
  Country: US (occurrence: None)
  Receive Date: 20140815
  Receipt Date: 20140815
  Transmission Date: 20150326
  Serious: Yes (Life-Threatening, Hospitalization)
  Sender: FDA-Public Use
  Company Number: None

PATIENT
  Age: 30 Year
  Sex: Male

DRUGS (10)
  1. CLOTRIMAZOLE. [Concomitant]
     Active Substance: CLOTRIMAZOLE
  2. HYDROXYZINE PAMOATE. [Concomitant]
     Active Substance: HYDROXYZINE PAMOATE
  3. METHYLPHENIDATE SR [Concomitant]
  4. BUPROPION HCL [Concomitant]
     Active Substance: BUPROPION HYDROCHLORIDE
  5. AMITRIPTYLINE HCL [Concomitant]
     Active Substance: AMITRIPTYLINE
  6. VARENICLINE [Suspect]
     Active Substance: VARENICLINE
     Indication: SMOKING CESSATION THERAPY
     Dates: start: 20140624, end: 20140724
  7. VARENICLINE [Concomitant]
     Active Substance: VARENICLINE
     Indication: INSOMNIA
     Dates: start: 20140624, end: 20140724
  8. ACETAMINOPHEN. [Concomitant]
     Active Substance: ACETAMINOPHEN
  9. VARENICLINE [Concomitant]
     Active Substance: VARENICLINE
     Dates: start: 20140624, end: 20140724
  10. CALCIUM CARB [Concomitant]

REACTIONS (2)
  - Intentional overdose [None]
  - Suicide attempt [None]

NARRATIVE: CASE EVENT DATE: 20140802
